FAERS Safety Report 9922458 (Version 2)
Quarter: 2014Q2

REPORT INFORMATION
  Report Type: Report from Study
  Country: US (occurrence: US)
  Receive Date: 20140225
  Receipt Date: 20140423
  Transmission Date: 20141212
  Serious: Yes (Hospitalization, Other)
  Sender: FDA-Public Use
  Company Number: US-ABBVIE-14P-163-1203904-00

PATIENT
  Age: 78 Year
  Sex: Male
  Weight: 79 kg

DRUGS (8)
  1. HUMIRA [Suspect]
     Indication: ANKYLOSING SPONDYLITIS
     Route: 058
     Dates: start: 20110623
  2. HUMIRA [Suspect]
     Dosage: RESTARTED
     Route: 058
  3. CRESTOR [Concomitant]
     Indication: BLOOD CHOLESTEROL INCREASED
  4. OMEGA 3 [Concomitant]
     Indication: BLOOD CHOLESTEROL INCREASED
  5. HYDROCODONE [Concomitant]
     Indication: ANKYLOSING SPONDYLITIS
  6. TYLENOL [Concomitant]
     Indication: ANKYLOSING SPONDYLITIS
  7. CIALIS [Concomitant]
     Indication: PRODUCT USED FOR UNKNOWN INDICATION
  8. ASA [Concomitant]
     Indication: PROPHYLAXIS

REACTIONS (1)
  - Bladder disorder [Recovered/Resolved]
